FAERS Safety Report 5991965-5 (Version None)
Quarter: 2008Q4

REPORT INFORMATION
  Report Type: 
  Country: None (occurrence: None)
  Receive Date: 20081211
  Receipt Date: 20081204
  Transmission Date: 20090506
  Serious: Yes (Hospitalization, Other)
  Sender: FDA-Public Use
  Company Number: TR-ROXANE LABORATORIES, INC.-2008-RO-00360RO

PATIENT
  Age: 33 Year
  Sex: Female

DRUGS (6)
  1. METHOTREXATE [Suspect]
     Indication: RHEUMATOID ARTHRITIS
  2. CARBAMAZEPINE [Suspect]
     Indication: SCIATICA
     Dosage: 200MG
  3. CEFTAZIDIME [Concomitant]
     Indication: PYREXIA
  4. IMIPENEM [Concomitant]
     Indication: PYREXIA
     Dosage: 2G
  5. IMIPENEM [Concomitant]
     Indication: NEUTROPENIA
  6. FOLINIC ACID [Concomitant]
     Indication: FOLATE DEFICIENCY

REACTIONS (6)
  - DEHYDRATION [None]
  - FOLATE DEFICIENCY [None]
  - HIP ARTHROPLASTY [None]
  - PANCYTOPENIA [None]
  - PYREXIA [None]
  - SCIATICA [None]
